FAERS Safety Report 9424832 (Version 1)
Quarter: 2013Q3

REPORT INFORMATION
  Report Type: Spontaneous
  Country: US (occurrence: US)
  Receive Date: 20130729
  Receipt Date: 20130729
  Transmission Date: 20140515
  Serious: No
  Sender: FDA-Public Use
  Company Number: US-PFIZER INC-2013217591

PATIENT
  Age: 56 Year
  Sex: Male

DRUGS (1)
  1. XALKORI [Suspect]
     Indication: SOFT TISSUE NEOPLASM
     Dosage: 250 MG, 2X/DAY
     Route: 048
     Dates: start: 20130617

REACTIONS (2)
  - Off label use [Unknown]
  - Photopsia [Unknown]
